FAERS Safety Report 16711322 (Version 1)
Quarter: 2019Q4

REPORT INFORMATION
  Report Type: Spontaneous
  Country: US (occurrence: US)
  Receive Date: 20190816
  Receipt Date: 20190816
  Transmission Date: 20200122
  Serious: Yes (Disabling, Other)
  Sender: FDA-Public Use
  Company Number: None

PATIENT
  Age: 44 Year
  Sex: Female
  Weight: 47.25 kg

DRUGS (2)
  1. CITANEST FORTE [Suspect]
     Active Substance: EPINEPHRINE BITARTRATE\PRILOCAINE HYDROCHLORIDE
     Indication: DENTAL OPERATION
     Dates: start: 20190423, end: 20190423
  2. ARTICAINE, 4% WITH EPINEPHRINE [Suspect]
     Active Substance: ARTICAINE HYDROCHLORIDE\EPINEPHRINE HYDROCHLORIDE
     Indication: DENTAL OPERATION
     Dates: start: 20190423, end: 20190423

REACTIONS (10)
  - Iatrogenic injury [None]
  - Nerve injury [None]
  - Stress [None]
  - Headache [None]
  - Hypoaesthesia oral [None]
  - Pain [None]
  - Oral pain [None]
  - Insomnia [None]
  - Anaesthetic complication [None]
  - Ageusia [None]

NARRATIVE: CASE EVENT DATE: 20190423
